FAERS Safety Report 10071309 (Version 1)
Quarter: 2014Q2

REPORT INFORMATION
  Report Type: Spontaneous
  Country: US (occurrence: US)
  Receive Date: 20140410
  Receipt Date: 20140410
  Transmission Date: 20141212
  Serious: Yes (Other)
  Sender: FDA-Public Use
  Company Number: US-PFIZER INC-2014099912

PATIENT
  Age: 57 Year
  Sex: Female
  Weight: 99.7 kg

DRUGS (2)
  1. EFFEXOR XR [Suspect]
     Indication: DEPRESSION
     Dosage: 150 MG, 2X/DAY
     Route: 048
     Dates: start: 1996
  2. LAMICTAL [Concomitant]
     Indication: DEPRESSION
     Dosage: UNK

REACTIONS (1)
  - Diabetes mellitus [Unknown]
